FAERS Safety Report 9586276 (Version 3)
Quarter: 2014Q3

REPORT INFORMATION
  Report Type: Spontaneous
  Country: US (occurrence: None)
  Receive Date: 20131001
  Receipt Date: 20140929
  Transmission Date: 20150326
  Serious: Yes (Other)
  Sender: FDA-Public Use
  Company Number: 2013US002549

PATIENT
  Age: 45 Year
  Sex: Male
  Weight: 96 kg

DRUGS (6)
  1. VALSARTAN (VALSARTAN) [Concomitant]
     Active Substance: VALSARTAN
  2. PONATINIB [Suspect]
     Active Substance: PONATINIB
     Route: 048
     Dates: start: 20091104
  3. HYDROCHLOROTHIAZIDE (HYDROCHLOROTHIAZIDE) [Concomitant]
     Active Substance: HYDROCHLOROTHIAZIDE
  4. PONATINIB [Suspect]
     Active Substance: PONATINIB
     Indication: CHRONIC MYELOID LEUKAEMIA
     Route: 048
     Dates: start: 20091104
  5. AMLODIPINE [Concomitant]
     Active Substance: AMLODIPINE BESYLATE
  6. TYLENOL [Concomitant]
     Active Substance: ACETAMINOPHEN

REACTIONS (1)
  - Miscarriage of partner [None]

NARRATIVE: CASE EVENT DATE: 20130913
